FAERS Safety Report 9038929 (Version 1)
Quarter: 2013Q1

REPORT INFORMATION
  Report Type: Spontaneous
  Country: US (occurrence: None)
  Receive Date: 20130123
  Receipt Date: 20130123
  Transmission Date: 20140127
  Serious: Yes (Other)
  Sender: FDA-Public Use
  Company Number: None

PATIENT
  Age: 36 Year
  Sex: Female
  Weight: 52.16 kg

DRUGS (1)
  1. DIAZEPAM [Suspect]
     Indication: DRUG DEPENDENCE
     Route: 048
     Dates: start: 20130103, end: 20130107

REACTIONS (3)
  - Anxiety [None]
  - Agitation [None]
  - Withdrawal syndrome [None]
